FAERS Safety Report 26020273 (Version 1)
Quarter: 2025Q4

REPORT INFORMATION
  Report Type: Spontaneous
  Country: US (occurrence: US)
  Receive Date: 20251110
  Receipt Date: 20251110
  Transmission Date: 20260118
  Serious: No
  Sender: GALPHARM INTERNATIONAL
  Company Number: US-PERRIGO-25US007018

PATIENT
  Age: 89 Year
  Sex: Male

DRUGS (1)
  1. POLYETHYLENE GLYCOL 3350 [Suspect]
     Active Substance: POLYETHYLENE GLYCOL 3350
     Indication: Constipation
     Dosage: UNKNOWN, SINGLE
     Route: 048
     Dates: start: 20250530, end: 20250530

REACTIONS (3)
  - Incorrect dose administered [Recovered/Resolved]
  - Wrong product administered [Recovered/Resolved]
  - Product preparation issue [Recovered/Resolved]

NARRATIVE: CASE EVENT DATE: 20250530
